FAERS Safety Report 5271269-9 (Version None)
Quarter: 2007Q1

REPORT INFORMATION
  Report Type: 
  Country: None (occurrence: None)
  Receive Date: 20070321
  Receipt Date: 20070315
  Transmission Date: 20070707
  Serious: Yes (Life-Threatening, Hospitalization)
  Sender: FDA-Public Use
  Company Number: ZA-BAYER-200711562GDS

PATIENT
  Age: 85 Year
  Sex: Female

DRUGS (11)
  1. AVELON [Suspect]
     Indication: URINARY TRACT INFECTION
     Route: 048
     Dates: start: 20070304, end: 20070306
  2. DIOVAN [Concomitant]
     Indication: DRUG USE FOR UNKNOWN INDICATION
  3. CARLOC [Concomitant]
     Indication: DRUG USE FOR UNKNOWN INDICATION
  4. SINEMET [Concomitant]
     Indication: DRUG USE FOR UNKNOWN INDICATION
  5. DIAMICRON [Concomitant]
     Indication: DRUG USE FOR UNKNOWN INDICATION
  6. FLORINEF [Concomitant]
     Indication: DRUG USE FOR UNKNOWN INDICATION
  7. PHARMATON [Concomitant]
     Indication: DRUG USE FOR UNKNOWN INDICATION
  8. LONITEN [Concomitant]
     Indication: DRUG USE FOR UNKNOWN INDICATION
  9. MOVICOL [Concomitant]
     Indication: DRUG USE FOR UNKNOWN INDICATION
  10. TEXA [Concomitant]
     Indication: DRUG USE FOR UNKNOWN INDICATION
  11. MYPAID [Concomitant]
     Indication: DRUG USE FOR UNKNOWN INDICATION

REACTIONS (2)
  - CONVULSION [None]
  - HYPOGLYCAEMIA [None]
